FAERS Safety Report 6180828-0 (Version None)
Quarter: 2009Q2

REPORT INFORMATION
  Report Type: 
  Country: None (occurrence: None)
  Receive Date: 20090504
  Receipt Date: 20090504
  Transmission Date: 20091009
  Serious: No
  Sender: FDA-Public Use
  Company Number: None

PATIENT
  Age: 19 Month
  Sex: Male
  Weight: 11.5214 kg

DRUGS (2)
  1. CEFDINIR [Suspect]
     Indication: EAR INFECTION
     Dosage: 3.2ML ONCE DAILY PO
     Route: 048
     Dates: start: 20090105, end: 20090115
  2. CEFDINIR [Suspect]
     Indication: EAR INFECTION
     Dosage: 3.2ML ONCE DAILY PO
     Route: 048
     Dates: start: 20090424, end: 20090502

REACTIONS (4)
  - CHEMICAL BURN OF SKIN [None]
  - DIARRHOEA [None]
  - EAR INFECTION [None]
  - SCREAMING [None]
